FAERS Safety Report 8770633 (Version 1)
Quarter: 2012Q4

REPORT INFORMATION
  Report Type: 
  Country: US (occurrence: US)
  Receive Date: 20120906
  Receipt Date: 20120906
  Transmission Date: 20130627
  Serious: Yes (Hospitalization, Disabling)
  Sender: FDA-Public Use
  Company Number: US-BAYER-2012-091255

PATIENT
  Age: 45 Year
  Sex: Female
  Weight: 77.1 kg

DRUGS (14)
  1. YAZ [Suspect]
  2. GIANVI [Suspect]
  3. CEPHALEXIN [Concomitant]
     Dosage: 500 mg, UNK
     Dates: start: 20110901
  4. OXYCONTIN [Concomitant]
     Dosage: 20 mg, every 12 [hours]
     Dates: start: 20110909, end: 20111010
  5. LEXAPRO [Concomitant]
     Dosage: 10 mg, daily
     Dates: start: 20110919, end: 20111010
  6. AMITRIPTYLINE [Concomitant]
     Dosage: 75 mg,every night
     Dates: start: 20111010
  7. LORTAB [Concomitant]
     Dosage: UNK UNK, PRN
  8. CYMBALTA [Concomitant]
     Dosage: 60 mg,every night
  9. DILAUDID [Concomitant]
  10. ANTIBIOTICS [Concomitant]
     Route: 042
  11. ENDOCET [Concomitant]
     Dosage: 7.5-325 mg
     Dates: end: 20111028
  12. ELAVIL [Concomitant]
  13. MORPHINE [Concomitant]
  14. ZOCOR [Concomitant]

REACTIONS (2)
  - Peripheral artery thrombosis [None]
  - Pulmonary embolism [None]
